FAERS Safety Report 24000348 (Version 1)
Quarter: 2024Q2

REPORT INFORMATION
  Report Type: Spontaneous
  Country: US (occurrence: US)
  Receive Date: 20240621
  Receipt Date: 20240621
  Transmission Date: 20240716
  Serious: No
  Sender: FDA-Public Use
  Company Number: US-002147023-NVSC2024US127359

PATIENT
  Sex: Female

DRUGS (3)
  1. MYFORTIC [Suspect]
     Active Substance: MYCOPHENOLATE SODIUM
     Indication: Product used for unknown indication
     Dosage: UNK
     Route: 065
  2. VOCLOSPORIN [Suspect]
     Active Substance: VOCLOSPORIN
     Indication: Lupus nephritis
     Dosage: 23.7 MG, BID
     Route: 048
     Dates: start: 20210807
  3. VOCLOSPORIN [Suspect]
     Active Substance: VOCLOSPORIN
     Dosage: 23.7 MG, BID
     Route: 048
     Dates: start: 20210807

REACTIONS (2)
  - Illness [Unknown]
  - Product dose omission issue [Unknown]
